FAERS Safety Report 16634566 (Version 1)
Quarter: 2019Q3

REPORT INFORMATION
  Report Type: Spontaneous
  Country: FR (occurrence: FR)
  Receive Date: 20190726
  Receipt Date: 20190726
  Transmission Date: 20191004
  Serious: Yes (Hospitalization)
  Sender: FDA-Public Use
  Company Number: FR-ORION CORPORATION ORION PHARMA-19_00006639

PATIENT
  Age: 82 Year
  Sex: Female

DRUGS (8)
  1. SPECIAFOLDINE [Concomitant]
     Active Substance: FOLIC ACID
     Indication: PROPHYLAXIS
     Dosage: STRENGTH: 5MG
     Route: 048
  2. TARDYFERON [Concomitant]
     Active Substance: FERROUS SULFATE
     Dosage: STRENGTH: 80MG
     Route: 065
  3. APROVEL [Concomitant]
     Active Substance: IRBESARTAN
     Indication: HYPERTENSION
     Dosage: STRENGTH: 150MG
     Route: 048
  4. LERCAN [Concomitant]
     Active Substance: LERCANIDIPINE
     Indication: HYPERTENSION
     Dosage: STRENGTH: 10 MG
     Route: 048
  5. IMETH [Suspect]
     Active Substance: METHOTREXATE SODIUM
     Indication: RHEUMATOID ARTHRITIS
     Dosage: STRENGTH 10 MG
     Route: 048
     Dates: end: 20190617
  6. SPIRIVA [Concomitant]
     Active Substance: TIOTROPIUM BROMIDE MONOHYDRATE
     Dosage: STRENGTH: 18 MICROGRAMS
     Route: 055
  7. NOCTAMIDE [Concomitant]
     Active Substance: LORMETAZEPAM
     Dosage: STRENGTH: 2MG
     Route: 048
  8. TRIVASTAL [Concomitant]
     Active Substance: PIRIBEDIL
     Dosage: STRENGTH: 50MG
     Route: 048

REACTIONS (3)
  - Anaemia [Recovering/Resolving]
  - Thrombocytosis [Recovered/Resolved]
  - Stomatitis [Recovered/Resolved]

NARRATIVE: CASE EVENT DATE: 2019
